FAERS Safety Report 5067130-5 (Version None)
Quarter: 2006Q3

REPORT INFORMATION
  Report Type: 
  Country: None (occurrence: None)
  Receive Date: 20060727
  Receipt Date: 20060725
  Transmission Date: 20061208
  Serious: Yes (Other)
  Sender: FDA-Public Use
  Company Number: DE-2006-009215

PATIENT
  Sex: Female

DRUGS (1)
  1. MIRENA [Suspect]
     Dosage: 20 UG/DAY, CONT, INTRA-UTERINE
     Route: 015

REACTIONS (5)
  - ANXIETY [None]
  - HEART RATE INCREASED [None]
  - HYPERHIDROSIS [None]
  - PANIC ATTACK [None]
  - SUICIDAL IDEATION [None]
